FAERS Safety Report 6138021-3 (Version None)
Quarter: 2009Q1

REPORT INFORMATION
  Report Type: 
  Country: None (occurrence: None)
  Receive Date: 20090331
  Receipt Date: 20081008
  Transmission Date: 20090719
  Serious: No
  Sender: FDA-Public Use
  Company Number: US-TYCO HEALTHCARE/MALLINCKRODT-T200801627

PATIENT

DRUGS (1)
  1. CONRAY [Suspect]
     Dosage: 9 ML, SINGLE
     Route: 058
     Dates: start: 20081008, end: 20081008

REACTIONS (1)
  - MEDICATION ERROR [None]
